FAERS Safety Report 21592740 (Version 1)
Quarter: 2022Q4

REPORT INFORMATION
  Report Type: Report from Study
  Country: TW (occurrence: TW)
  Receive Date: 20221114
  Receipt Date: 20221114
  Transmission Date: 20230113
  Serious: Yes (Hospitalization, Other)
  Sender: FDA-Public Use
  Company Number: TW-GW PHARMA-2022-TW-034505

PATIENT
  Age: 18 Year
  Sex: Male
  Weight: 103 kg

DRUGS (6)
  1. EPIDIOLEX [Suspect]
     Active Substance: CANNABIDIOL
     Indication: Severe myoclonic epilepsy of infancy
     Dosage: 7.5 MILLILITER, BID
     Route: 048
     Dates: start: 20220610
  2. MIDAZOLAM HYDROCHLORIDE [Suspect]
     Active Substance: MIDAZOLAM HYDROCHLORIDE
  3. CLOBAZAM [Concomitant]
     Active Substance: CLOBAZAM
     Indication: Epilepsy
     Dosage: 20 MILLIGRAM, HS
     Dates: start: 20220309
  4. KEPPRA [Concomitant]
     Active Substance: LEVETIRACETAM
     Indication: Seizure
     Dosage: 1500 MILLIGRAM, BID
     Dates: start: 20140801
  5. TOPAMAX [Concomitant]
     Active Substance: TOPIRAMATE
     Indication: Seizure
     Dosage: 25 MILLIGRAM, BID (4 CAPS)
     Dates: start: 20170303
  6. VALPROIC ACID [Concomitant]
     Active Substance: VALPROIC ACID
     Indication: Seizure
     Dosage: 500 MILLIGRAM, BID
     Dates: start: 20220708

REACTIONS (14)
  - Altered state of consciousness [Recovered/Resolved]
  - Seizure [Recovering/Resolving]
  - Lactic acidosis [Unknown]
  - Urethral haemorrhage [Recovered/Resolved]
  - Aggression [Unknown]
  - Head titubation [Unknown]
  - Muscular weakness [Unknown]
  - Cyanosis [Recovered/Resolved]
  - Oxygen saturation decreased [Recovered/Resolved]
  - Muscle twitching [Unknown]
  - Hypertension [Unknown]
  - Leukocytosis [Unknown]
  - Respiratory acidosis [Unknown]
  - Stupor [Unknown]

NARRATIVE: CASE EVENT DATE: 20220901
